FAERS Safety Report 6953453-9 (Version None)
Quarter: 2010Q3

REPORT INFORMATION
  Report Type: 
  Country: None (occurrence: None)
  Receive Date: 20100829
  Receipt Date: 20100617
  Transmission Date: 20110219
  Serious: No
  Sender: FDA-Public Use
  Company Number: US-ABBOTT-10P-163-0652055-00

PATIENT
  Sex: Male
  Weight: 108.96 kg

DRUGS (2)
  1. NIASPAN [Suspect]
     Indication: BLOOD TRIGLYCERIDES INCREASED
     Dates: start: 20100516
  2. NIASPAN [Suspect]
     Dosage: AT BEDTIME

REACTIONS (1)
  - NAUSEA [None]
